FAERS Safety Report 7624706-6 (Version None)
Quarter: 2011Q3

REPORT INFORMATION
  Report Type: 
  Country: None (occurrence: None)
  Receive Date: 20110720
  Receipt Date: 20110711
  Transmission Date: 20111222
  Serious: Yes (Hospitalization, Other)
  Sender: FDA-Public Use
  Company Number: US-ASTRAZENECA-2011SE28468

PATIENT
  Age: 61 Year
  Sex: Male

DRUGS (5)
  1. CRESTOR [Suspect]
     Route: 048
  2. METOPROLOL TARTRATE [Concomitant]
  3. DIOVAN [Concomitant]
  4. NITROGLYCERIN [Concomitant]
  5. METFORMIN HCL [Concomitant]

REACTIONS (8)
  - ARTERIAL OCCLUSIVE DISEASE [None]
  - BLOOD CHOLESTEROL INCREASED [None]
  - ARTERIAL THERAPEUTIC PROCEDURE [None]
  - ASTHENIA [None]
  - STENT PLACEMENT [None]
  - DIABETES MELLITUS [None]
  - CATARACT [None]
  - EYE OPERATION [None]
